FAERS Safety Report 22068286 (Version 1)
Quarter: 2023Q1

REPORT INFORMATION
  Report Type: Spontaneous
  Country: US (occurrence: US)
  Receive Date: 20230307
  Receipt Date: 20230307
  Transmission Date: 20230418
  Serious: Yes (Other)
  Sender: FDA-Public Use
  Company Number: US-AMGEN-USASP2023037048

PATIENT
  Age: 65 Year
  Sex: Male

DRUGS (1)
  1. REPATHA [Suspect]
     Active Substance: EVOLOCUMAB
     Indication: Carotid artery occlusion
     Dosage: 420 MILLIGRAM, Q4WK
     Route: 058
     Dates: start: 202210

REACTIONS (1)
  - Carotid endarterectomy [Unknown]

NARRATIVE: CASE EVENT DATE: 20230225
